FAERS Safety Report 12941591 (Version 2)
Quarter: 2017Q1

REPORT INFORMATION
  Report Type: Report from Study
  Country: US (occurrence: US)
  Receive Date: 20161114
  Receipt Date: 20170203
  Transmission Date: 20170428
  Serious: Yes (Hospitalization, Other)
  Sender: FDA-Public Use
  Company Number: US-ASTRAZENECA-2016SF16704

PATIENT
  Age: 805 Month
  Sex: Female
  Weight: 107 kg

DRUGS (14)
  1. GABAPENTIN. [Concomitant]
     Active Substance: GABAPENTIN
     Route: 065
  2. AZD2281 [Suspect]
     Active Substance: OLAPARIB
     Indication: MALIGNANT PERITONEAL NEOPLASM
     Route: 048
     Dates: start: 20160615, end: 20161007
  3. OMEPRAZOLE. [Concomitant]
     Active Substance: OMEPRAZOLE
     Route: 065
  4. DOCUSATE [Concomitant]
     Active Substance: DOCUSATE
     Route: 065
  5. ACETAMINOPHEN. [Concomitant]
     Active Substance: ACETAMINOPHEN
     Route: 065
  6. AZD2171 [Suspect]
     Active Substance: CEDIRANIB
     Indication: MALIGNANT PERITONEAL NEOPLASM
     Route: 048
     Dates: start: 20161026, end: 20161219
  7. PLAQUENIL [Concomitant]
     Active Substance: HYDROXYCHLOROQUINE SULFATE
     Route: 065
  8. HYDROCHLOROTHIAZIDE-TRIAMTERENE [Concomitant]
     Route: 065
  9. AZD2281 [Suspect]
     Active Substance: OLAPARIB
     Indication: MALIGNANT PERITONEAL NEOPLASM
     Route: 048
     Dates: start: 20161026, end: 20161219
  10. PENICILLIN [Suspect]
     Active Substance: PENICILLIN
     Indication: CYSTITIS
     Route: 065
  11. AMOXICILLIN-CLAVULANATE [Concomitant]
     Active Substance: AMOXICILLIN\CLAVULANIC ACID
     Route: 065
  12. AZD2171 [Suspect]
     Active Substance: CEDIRANIB
     Indication: MALIGNANT PERITONEAL NEOPLASM
     Route: 048
     Dates: start: 20160615, end: 20161007
  13. HYDROMORPHONE [Concomitant]
     Active Substance: HYDROMORPHONE
     Route: 065
  14. TYLENOL [Concomitant]
     Active Substance: ACETAMINOPHEN
     Route: 065

REACTIONS (4)
  - Abdominal pain [Recovered/Resolved]
  - Nausea [Recovering/Resolving]
  - Hallucination [Recovering/Resolving]
  - Vomiting [Recovering/Resolving]

NARRATIVE: CASE EVENT DATE: 20161007
